FAERS Safety Report 25575251 (Version 2)
Quarter: 2025Q4

REPORT INFORMATION
  Report Type: Spontaneous
  Country: EU (occurrence: EU)
  Receive Date: 20250718
  Receipt Date: 20251121
  Transmission Date: 20260118
  Serious: Yes (Other)
  Sender: NOVARTIS
  Company Number: EU-002147023-NVSC2025GR111031

PATIENT
  Age: 35 Year
  Sex: Male

DRUGS (1)
  1. IPTACOPAN [Suspect]
     Active Substance: IPTACOPAN
     Indication: C3 glomerulopathy
     Dosage: UNK
     Route: 065

REACTIONS (2)
  - Haematuria [Not Recovered/Not Resolved]
  - Proteinuria [Recovering/Resolving]
